FAERS Safety Report 21170761 (Version 1)
Quarter: 2022Q3

REPORT INFORMATION
  Report Type: Spontaneous
  Country: US (occurrence: US)
  Receive Date: 20220804
  Receipt Date: 20220804
  Transmission Date: 20221026
  Serious: No
  Sender: FDA-Public Use
  Company Number: US-UNITED THERAPEUTICS-UNT-2022-015123

PATIENT
  Age: 55 Year
  Sex: Female
  Weight: 98.866 kg

DRUGS (5)
  1. REMODULIN [Suspect]
     Active Substance: TREPROSTINIL
     Indication: Pulmonary arterial hypertension
     Dosage: 0.00125 ?G/KG, CONTINUING
     Route: 058
     Dates: start: 20220707
  2. REMODULIN [Suspect]
     Active Substance: TREPROSTINIL
     Dosage: UNK, CONTINUING (DOSE INCREASED)
     Route: 058
     Dates: start: 20220714
  3. OPSUMIT [Concomitant]
     Active Substance: MACITENTAN
     Indication: Product used for unknown indication
     Dosage: UNK
     Route: 065
  4. TADALAFIL [Concomitant]
     Active Substance: TADALAFIL
     Indication: Product used for unknown indication
     Dosage: UNK
     Route: 065
  5. ELIQUIS [Concomitant]
     Active Substance: APIXABAN
     Indication: Product used for unknown indication
     Dosage: UNK
     Route: 065

REACTIONS (10)
  - Hypotension [Unknown]
  - Headache [Recovered/Resolved]
  - Dizziness [Unknown]
  - Infusion site pain [Recovered/Resolved]
  - Infusion site erythema [Unknown]
  - Lip erythema [Unknown]
  - Dizziness postural [Unknown]
  - Dermatitis contact [Unknown]
  - Infusion site irritation [Unknown]
  - Infusion site discolouration [Unknown]

NARRATIVE: CASE EVENT DATE: 20220701
